FAERS Safety Report 4547858-3 (Version None)
Quarter: 2004Q4

REPORT INFORMATION
  Report Type: 
  Country: None (occurrence: None)
  Receive Date: 20041227
  Receipt Date: 20041117
  Transmission Date: 20050328
  Serious: No
  Sender: FDA-Public Use
  Company Number: 04P-163-0280831-00

PATIENT
  Age: 63 Year
  Sex: Female
  Weight: 44.4525 kg

DRUGS (3)
  1. HUMIRA [Suspect]
     Indication: RHEUMATOID ARTHRITIS
     Dosage: 40 MG, 1 IN 2 WK, PER ORAL
     Route: 048
     Dates: start: 20030101
  2. PREDNISONE [Concomitant]
  3. AMLOPIDINE BESILATE [Concomitant]

REACTIONS (2)
  - EAR PAIN [None]
  - NASOPHARYNGITIS [None]
